FAERS Safety Report 10461379 (Version 1)
Quarter: 2014Q3

REPORT INFORMATION
  Report Type: Spontaneous
  Country: US (occurrence: None)
  Receive Date: 20140917
  Receipt Date: 20140917
  Transmission Date: 20150326
  Serious: No
  Sender: FDA-Public Use
  Company Number: None

PATIENT
  Age: 62 Year
  Sex: Male

DRUGS (1)
  1. IMBRUVICA [Suspect]
     Active Substance: IBRUTINIB
     Indication: CHRONIC LYMPHOCYTIC LEUKAEMIA
     Route: 048
     Dates: start: 20140221

REACTIONS (6)
  - Contusion [None]
  - Myalgia [None]
  - Bone pain [None]
  - Rash [None]
  - Platelet count decreased [None]
  - Dyspepsia [None]

NARRATIVE: CASE EVENT DATE: 20140912
